FAERS Safety Report 13291921 (Version 1)
Quarter: 2017Q1

REPORT INFORMATION
  Report Type: Spontaneous
  Country: US (occurrence: US)
  Receive Date: 20170303
  Receipt Date: 20170303
  Transmission Date: 20170428
  Serious: Yes (Other)
  Sender: FDA-Public Use
  Company Number: US-TEVA-743661ACC

PATIENT
  Age: 23 Year
  Sex: Female
  Weight: 66.28 kg

DRUGS (4)
  1. IRON [Concomitant]
     Active Substance: IRON
  2. PRENATAL VITAMINS [Concomitant]
     Active Substance: VITAMINS
  3. SENOKOT [Concomitant]
     Active Substance: SENNOSIDES
  4. PARAGARD T 380A [Suspect]
     Active Substance: COPPER
     Indication: CONTRACEPTION
     Dates: start: 20161206, end: 20170126

REACTIONS (2)
  - Device dislocation [Recovered/Resolved]
  - Pain [Unknown]

NARRATIVE: CASE EVENT DATE: 20170125
